FAERS Safety Report 16137944 (Version 5)
Quarter: 2019Q4

REPORT INFORMATION
  Report Type: Spontaneous
  Country: US (occurrence: US)
  Receive Date: 20190330
  Receipt Date: 20191015
  Transmission Date: 20200122
  Serious: Yes (Other)
  Sender: FDA-Public Use
  Company Number: US-TEVA-2019-US-1024211

PATIENT
  Sex: Female

DRUGS (10)
  1. SYNRIBO [Suspect]
     Active Substance: OMACETAXINE MEPESUCCINATE
     Indication: CHRONIC MYELOID LEUKAEMIA
     Dosage: 2 DOSAGE FORMS DAILY; DOSAGE: 2.28MG/0.65ML, FOR 5 DAYS
     Dates: start: 20190909
  2. BENADRYL [Concomitant]
     Active Substance: DIPHENHYDRAMINE HYDROCHLORIDE
  3. OMEPRAZOLE. [Concomitant]
     Active Substance: OMEPRAZOLE
  4. SYNRIBO [Suspect]
     Active Substance: OMACETAXINE MEPESUCCINATE
     Dosage: 2 DOSAGE FORMS DAILY; DOSAGE: 2.28MG/0.65ML
     Dates: start: 20190226
  5. AMITRIPTYLIN [Concomitant]
     Active Substance: AMITRIPTYLINE
  6. SYNRIBO [Suspect]
     Active Substance: OMACETAXINE MEPESUCCINATE
     Dosage: 2 DOSAGE FORMS DAILY; DOSAGE: 2.28MG/0.65ML
     Dates: start: 20190225
  7. OXYCODONE [Concomitant]
     Active Substance: OXYCODONE
  8. FENTANYL. [Concomitant]
     Active Substance: FENTANYL
  9. ADVIL PM [Concomitant]
     Active Substance: DIPHENHYDRAMINE CITRATE\IBUPROFEN
     Route: 065
  10. SYMBICORT [Concomitant]
     Active Substance: BUDESONIDE\FORMOTEROL FUMARATE DIHYDRATE

REACTIONS (11)
  - Burning sensation [Unknown]
  - Hallucination [Unknown]
  - Loss of consciousness [Unknown]
  - Hot flush [Unknown]
  - Contusion [Unknown]
  - Headache [Unknown]
  - Night sweats [Unknown]
  - Urticaria [Unknown]
  - Rash [Unknown]
  - Oral herpes [Unknown]
  - Injection site bruising [Unknown]
